FAERS Safety Report 19444192 (Version 1)
Quarter: 2021Q2

REPORT INFORMATION
  Report Type: Spontaneous
  Country: US (occurrence: US)
  Receive Date: 20210621
  Receipt Date: 20210621
  Transmission Date: 20210717
  Serious: Yes (Other)
  Sender: FDA-Public Use
  Company Number: US-SA-2021SA201995

PATIENT
  Sex: Female

DRUGS (2)
  1. AMPYRA [Concomitant]
     Active Substance: DALFAMPRIDINE
  2. AUBAGIO [Suspect]
     Active Substance: TERIFLUNOMIDE
     Indication: MULTIPLE SCLEROSIS
     Dosage: UNK
     Route: 048
     Dates: start: 2019, end: 2021

REACTIONS (4)
  - Multiple sclerosis relapse [Unknown]
  - Asthenia [Unknown]
  - Muscle rigidity [Unknown]
  - Gait disturbance [Unknown]

NARRATIVE: CASE EVENT DATE: 202105
